FAERS Safety Report 6127248-2 (Version None)
Quarter: 2009Q1

REPORT INFORMATION
  Report Type: 
  Country: None (occurrence: None)
  Receive Date: 20090317
  Receipt Date: 20090216
  Transmission Date: 20090719
  Serious: Yes (Other)
  Sender: FDA-Public Use
  Company Number: 2009S1002746

PATIENT
  Age: 45 Year
  Sex: Male

DRUGS (6)
  1. OMEPRAZOLE [Suspect]
     Indication: DYSPEPSIA
  2. ATAZANAVIR SULFATE [Suspect]
     Indication: HIV INFECTION CDC CATEGORY A3
  3. TENOFOVIR DISOPROXIL [Concomitant]
  4. FUMARATE [Concomitant]
  5. EMTRICITABINE [Concomitant]
  6. RITONAVIR [Concomitant]

REACTIONS (2)
  - BLOOD HIV RNA INCREASED [None]
  - DRUG INTERACTION [None]
